FAERS Safety Report 9548381 (Version 1)
Quarter: 2013Q3

REPORT INFORMATION
  Report Type: Spontaneous
  Country: BR (occurrence: None)
  Receive Date: 20130920
  Receipt Date: 20130920
  Transmission Date: 20140515
  Serious: Yes (Hospitalization)
  Sender: FDA-Public Use
  Company Number: SYM-2013-10819

PATIENT
  Age: 50 Year
  Sex: Male

DRUGS (7)
  1. 5 FU [Suspect]
     Indication: COLORECTAL CANCER METASTATIC
     Route: 040
     Dates: start: 20130418, end: 20130418
  2. AFLIBERCEPT [Suspect]
     Indication: COLORECTAL CANCER METASTATIC
     Route: 042
     Dates: start: 20130418, end: 20130418
  3. IRINOTECAN [Suspect]
     Indication: COLORECTAL CANCER METASTATIC
     Route: 042
     Dates: start: 20130418, end: 20130418
  4. LEUCOVORIN [Suspect]
     Indication: COLORECTAL CANCER METASTATIC
     Route: 042
     Dates: start: 20130418, end: 20130418
  5. LOPERAMIDE(LOPERAMIDE)(LOPERAMIDE) [Concomitant]
  6. ANGIOTENSIN II ANTAGONISTS(ANGIOTENSIN II ANTAGONISTS, PLAIN)(NULL) [Concomitant]
  7. ANALGESICS(ANALGESICS) [Concomitant]

REACTIONS (1)
  - Deep vein thrombosis [None]
